FAERS Safety Report 19974331 (Version 1)
Quarter: 2021Q4

REPORT INFORMATION
  Report Type: Spontaneous
  Country: US (occurrence: US)
  Receive Date: 20211020
  Receipt Date: 20211020
  Transmission Date: 20220303
  Serious: No
  Sender: FDA-Public Use
  Company Number: US-PFIZER INC-2021367897

PATIENT

DRUGS (1)
  1. GABAPENTIN [Suspect]
     Active Substance: GABAPENTIN
     Indication: Neuralgia
     Dosage: 300 MG, 3X/DAY
     Dates: start: 2011

REACTIONS (9)
  - Tooth loss [Unknown]
  - Gingival recession [Unknown]
  - Loose tooth [Unknown]
  - Pain [Recovering/Resolving]
  - Insomnia [Unknown]
  - Fatigue [Unknown]
  - Off label use [Unknown]
  - Mastication disorder [Unknown]
  - Eating disorder [Unknown]
